FAERS Safety Report 12071999 (Version 1)
Quarter: 2016Q1

REPORT INFORMATION
  Report Type: Spontaneous
  Country: US (occurrence: None)
  Receive Date: 20160211
  Receipt Date: 20160211
  Transmission Date: 20160526
  Serious: No
  Sender: FDA-Public Use
  Company Number: None

PATIENT
  Age: 79 Year
  Sex: Female
  Weight: 62.14 kg

DRUGS (1)
  1. RAMIPRIL 10 MG (RAMIPRIL) UNKNOWN, 10 MG [Suspect]
     Active Substance: RAMIPRIL
     Route: 048
     Dates: start: 20150513, end: 20150825

REACTIONS (1)
  - Swollen tongue [None]

NARRATIVE: CASE EVENT DATE: 20150824
